FAERS Safety Report 16770662 (Version 4)
Quarter: 2019Q4

REPORT INFORMATION
  Report Type: Report from Study
  Country: CO (occurrence: CO)
  Receive Date: 20190904
  Receipt Date: 20191104
  Transmission Date: 20200122
  Serious: Yes (Hospitalization)
  Sender: FDA-Public Use
  Company Number: PHHY2019CO190528

PATIENT
  Age: 12 Year
  Sex: Female
  Weight: 52 kg

DRUGS (4)
  1. REVOLADE [Suspect]
     Active Substance: ELTROMBOPAG
     Indication: IMMUNE THROMBOCYTOPENIC PURPURA
     Dosage: 50 MG, QD
     Route: 048
     Dates: start: 2018
  2. REVOLADE [Suspect]
     Active Substance: ELTROMBOPAG
     Dosage: 50 MG, QD
     Route: 048
     Dates: end: 201907
  3. REVOLADE [Suspect]
     Active Substance: ELTROMBOPAG
     Dosage: 75 MG, QD
     Route: 048
  4. REVOLADE [Suspect]
     Active Substance: ELTROMBOPAG
     Dosage: 75 MG, QD
     Route: 048
     Dates: start: 20180211

REACTIONS (18)
  - Petechiae [Unknown]
  - Migraine [Unknown]
  - Depressed mood [Unknown]
  - Viral infection [Recovered/Resolved]
  - Platelet count increased [Unknown]
  - Rhinitis [Unknown]
  - Influenza like illness [Unknown]
  - General physical health deterioration [Unknown]
  - Vomiting [Recovered/Resolved]
  - Disease recurrence [Unknown]
  - Platelet count decreased [Not Recovered/Not Resolved]
  - Dehydration [Recovered/Resolved]
  - Drug ineffective [Unknown]
  - Immune thrombocytopenic purpura [Unknown]
  - Malaise [Recovered/Resolved]
  - Decreased immune responsiveness [Unknown]
  - Headache [Not Recovered/Not Resolved]
  - Gastroenteritis [Unknown]

NARRATIVE: CASE EVENT DATE: 201907
